FAERS Safety Report 7018807-3 (Version None)
Quarter: 2010Q3

REPORT INFORMATION
  Report Type: 
  Country: None (occurrence: None)
  Receive Date: 20100928
  Receipt Date: 20100916
  Transmission Date: 20110219
  Serious: Yes (Other)
  Sender: FDA-Public Use
  Company Number: GB-PFIZER INC-2010117744

PATIENT
  Sex: Male

DRUGS (2)
  1. GABAPENTIN [Suspect]
     Indication: POST HERPETIC NEURALGIA
     Dosage: UNK
  2. AXSAIN [Concomitant]
     Indication: POST HERPETIC NEURALGIA

REACTIONS (11)
  - ADVERSE DRUG REACTION [None]
  - APATHY [None]
  - DEPRESSION [None]
  - DISCOMFORT [None]
  - DRUG WITHDRAWAL SYNDROME [None]
  - FATIGUE [None]
  - MUSCLE TWITCHING [None]
  - NIGHT SWEATS [None]
  - PAIN IN EXTREMITY [None]
  - PARAESTHESIA [None]
  - SLEEP DISORDER [None]
